FAERS Safety Report 21510928 (Version 1)
Quarter: 2022Q4

REPORT INFORMATION
  Report Type: Spontaneous
  Country: US (occurrence: None)
  Receive Date: 20221026
  Receipt Date: 20221026
  Transmission Date: 20230113
  Serious: No
  Sender: FDA-Public Use
  Company Number: None

PATIENT
  Age: 36 Year
  Sex: Male

DRUGS (1)
  1. DESCOVY [Suspect]
     Active Substance: EMTRICITABINE\TENOFOVIR ALAFENAMIDE FUMARATE
     Indication: Sexually transmitted disease
     Dosage: FREQUENCY : DAILY;?
     Route: 048
     Dates: start: 202208

REACTIONS (2)
  - Gastroenteritis viral [None]
  - Gastroenteritis viral [None]
